FAERS Safety Report 6892773-3 (Version None)
Quarter: 2010Q3

REPORT INFORMATION
  Report Type: 
  Country: None (occurrence: None)
  Receive Date: 20100731
  Receipt Date: 20080925
  Transmission Date: 20110219
  Serious: Yes (Other)
  Sender: FDA-Public Use
  Company Number: US-PFIZER INC-2008062313

PATIENT
  Sex: Male

DRUGS (2)
  1. GABAPENTIN [Suspect]
     Indication: NEURALGIA
     Dates: start: 20080701
  2. LEVOXYL [Concomitant]
     Indication: THYROID DISORDER
     Dates: start: 20071201

REACTIONS (3)
  - NEURALGIA [None]
  - POLLAKIURIA [None]
  - WEIGHT DECREASED [None]
